FAERS Safety Report 5619720-6 (Version None)
Quarter: 2008Q1

REPORT INFORMATION
  Report Type: 
  Country: None (occurrence: None)
  Receive Date: 20080208
  Receipt Date: 20071105
  Transmission Date: 20080703
  Serious: No
  Sender: FDA-Public Use
  Company Number: A0691430A

PATIENT
  Sex: Male

DRUGS (2)
  1. ALTABAX [Suspect]
     Indication: POSTOPERATIVE WOUND INFECTION
     Route: 061
     Dates: start: 20071001, end: 20070101
  2. UNKNOWN [Concomitant]

REACTIONS (2)
  - APPLICATION SITE DISCOLOURATION [None]
  - APPLICATION SITE SWELLING [None]
